FAERS Safety Report 8294876-8 (Version None)
Quarter: 2012Q2

REPORT INFORMATION
  Report Type: 
  Country: None (occurrence: None)
  Receive Date: 20120418
  Receipt Date: 20120326
  Transmission Date: 20120825
  Serious: No
  Sender: FDA-Public Use
  Company Number: US-BAYER-2012-029414

PATIENT
  Age: 18 Year
  Sex: Female

DRUGS (2)
  1. LEXAPRO [Concomitant]
     Indication: DEPRESSION
  2. MIRENA [Suspect]
     Indication: MENORRHAGIA
     Dosage: 20 MCG/24HR, CONT
     Route: 015
     Dates: start: 20120315

REACTIONS (2)
  - TEARFULNESS [None]
  - MOOD SWINGS [None]
